FAERS Safety Report 5735004-X (Version None)
Quarter: 2008Q2

REPORT INFORMATION
  Report Type: 
  Country: None (occurrence: None)
  Receive Date: 20080512
  Receipt Date: 20080505
  Transmission Date: 20081010
  Serious: Yes (Other)
  Sender: FDA-Public Use
  Company Number: US-AVENTIS-200718355US

PATIENT
  Sex: Female
  Weight: 108 kg

DRUGS (13)
  1. KETEK [Suspect]
     Indication: BRONCHITIS
     Dosage: DOSE: 400 MG 2TABS QD X DAYS
     Route: 048
     Dates: start: 20060427
  2. KETEK [Suspect]
     Dosage: DOSE: 400 MG 2TABS QD X DAYS
     Route: 048
     Dates: start: 20060427
  3. KETEK [Suspect]
     Dosage: DOSE: 400 MG 2TABS QD X DAYS
     Route: 048
     Dates: start: 20060427
  4. SINGULAIR [Concomitant]
     Dosage: DOSE: AS NEEDED
  5. XOPENEX [Concomitant]
     Dosage: DOSE: NEBULIZER IN OFFICE
     Dates: start: 20060427
  6. DECADRON [Concomitant]
     Route: 030
     Dates: start: 20060427
  7. PREDNISONE TAB [Concomitant]
     Dosage: DOSE: 10 MG TAB (30 MG BID X 5 DYS)
     Route: 048
     Dates: start: 20060427
  8. ROBITUSSIN [Concomitant]
     Dosage: DOSE: OVER THE COUNTER
     Dates: start: 20060427
  9. LORTAB [Concomitant]
     Dosage: DOSE: 5 (ONE TAB AS NEEDED AT BEDTIME)
     Dates: start: 20060427
  10. ALBUTEROL [Concomitant]
     Dosage: DOSE: 2 PUFFS EVERY 4 HRS AS NEEDED
     Dates: start: 20060427
  11. CLARINEX [Concomitant]
     Dates: start: 20060509
  12. TESSALON [Concomitant]
     Indication: COUGH
     Dosage: DOSE: ONE Q 6HRS PRN COUGH
     Dates: start: 20060509
  13. CLARITIN [Concomitant]
     Dates: start: 20060912

REACTIONS (8)
  - ANXIETY [None]
  - ASTHENIA [None]
  - BACK PAIN [None]
  - CARDIAC FAILURE CONGESTIVE [None]
  - CONGESTIVE CARDIOMYOPATHY [None]
  - DYSPNOEA [None]
  - FATIGUE [None]
  - HYPERHIDROSIS [None]
